FAERS Safety Report 9485435 (Version 1)
Quarter: 2013Q3

REPORT INFORMATION
  Report Type: Report from Study
  Country: US (occurrence: US)
  Receive Date: 20130829
  Receipt Date: 20130829
  Transmission Date: 20140515
  Serious: Yes (Death)
  Sender: FDA-Public Use
  Company Number: US-ROCHE-1266867

PATIENT
  Sex: Male

DRUGS (1)
  1. PEGASYS [Suspect]
     Indication: HEPATITIS C
     Route: 065

REACTIONS (5)
  - Death [Fatal]
  - Diarrhoea [Unknown]
  - Influenza like illness [Unknown]
  - Vomiting [Unknown]
  - Pain in extremity [Unknown]
